FAERS Safety Report 6669341 (Version 5)
Quarter: 2013Q4

REPORT INFORMATION
  Report Type: Spontaneous
  Country: GB (occurrence: GB)
  Receive Date: 20080617
  Receipt Date: 20131105
  Transmission Date: 20140711
  Serious: Yes (Hospitalization)
  Sender: FDA-Public Use
  Company Number: GB-TEVA-155411ISR

PATIENT
  Sex: Female

DRUGS (5)
  1. AZILECT [Suspect]
     Indication: PARKINSON^S DISEASE
     Dosage: 4 MILLIGRAM DAILY;
     Route: 048
     Dates: start: 20070412, end: 20070413
  2. AZILECT [Suspect]
     Dosage: 3 MILLIGRAM DAILY;
     Dates: start: 20070414, end: 20070415
  3. AZILECT [Suspect]
     Dosage: 1 MILLIGRAM DAILY;
     Dates: start: 20070416
  4. STALEVO [Concomitant]
     Dosage: 100
  5. TRAMADOL [Concomitant]

REACTIONS (8)
  - Medication error [Recovered/Resolved]
  - Serotonin syndrome [Recovered/Resolved]
  - Intentional self-injury [Unknown]
  - Rectal haemorrhage [Unknown]
  - Dyskinesia [Unknown]
  - Chromaturia [Unknown]
  - Blood test abnormal [Unknown]
  - Dehydration [Unknown]
